FAERS Safety Report 26212940 (Version 1)
Quarter: 2025Q4

REPORT INFORMATION
  Report Type: Spontaneous
  Country: US (occurrence: US)
  Receive Date: 20251230
  Receipt Date: 20251230
  Transmission Date: 20260117
  Serious: Yes (Hospitalization)
  Sender: BAYER HEALTHCARE PHARMACEUTICALS INC.
  Company Number: US-BAYER-2025A169737

PATIENT
  Age: 32 Year
  Sex: Female

DRUGS (1)
  1. MIRENA [Suspect]
     Active Substance: LEVONORGESTREL
     Dosage: 20?G/DAY
     Route: 015
     Dates: start: 20231215, end: 20251121

REACTIONS (4)
  - Pelvic pain [Recovered/Resolved with Sequelae]
  - Nausea [Recovered/Resolved with Sequelae]
  - Urinary tract infection [None]
  - Mental disorder [None]

NARRATIVE: CASE EVENT DATE: 20251113
